FAERS Safety Report 8958411 (Version 1)
Quarter: 2012Q4

REPORT INFORMATION
  Report Type: 
  Country: DE (occurrence: DE)
  Receive Date: 20121210
  Receipt Date: 20121210
  Transmission Date: 20130627
  Serious: Yes (Hospitalization)
  Sender: FDA-Public Use
  Company Number: DE-GLAXOSMITHKLINE-D0078099A

PATIENT
  Age: 35 Year
  Sex: Female

DRUGS (2)
  1. SEROXAT [Suspect]
     Route: 048
     Dates: start: 20121209
  2. LEPONEX [Suspect]
     Route: 048
     Dates: start: 20121209

REACTIONS (4)
  - Suicide attempt [Unknown]
  - Disturbance in attention [Unknown]
  - Vomiting [Unknown]
  - Somnolence [Unknown]
